FAERS Safety Report 24917749 (Version 2)
Quarter: 2025Q1

REPORT INFORMATION
  Report Type: Spontaneous
  Country: BR (occurrence: BR)
  Receive Date: 20250203
  Receipt Date: 20250217
  Transmission Date: 20250408
  Serious: Yes (Other)
  Sender: JOHNSON AND JOHNSON
  Company Number: BR-JNJFOC-20250170187

PATIENT
  Age: 39 Year
  Sex: Male

DRUGS (1)
  1. TECVAYLI [Suspect]
     Active Substance: TECLISTAMAB-CQYV
     Indication: Plasma cell myeloma
     Dates: start: 202312

REACTIONS (4)
  - Plasma cell myeloma [Unknown]
  - Transfusion [Unknown]
  - Thoracic vertebral fracture [Unknown]
  - Therapeutic response decreased [Unknown]
